FAERS Safety Report 14847371 (Version 2)
Quarter: 2018Q3

REPORT INFORMATION
  Report Type: Spontaneous
  Country: JP (occurrence: JP)
  Receive Date: 20180504
  Receipt Date: 20180716
  Transmission Date: 20181010
  Serious: Yes (Other)
  Sender: FDA-Public Use
  Company Number: JP-JNJFOC-20180503347

PATIENT
  Age: 56 Year
  Sex: Male
  Weight: 77 kg

DRUGS (4)
  1. MICAMLO [Concomitant]
     Active Substance: AMLODIPINE BESYLATE\TELMISARTAN
     Dosage: BEFORE ADMINISTRATION OF CANAGLIFLOZIN
     Route: 048
  2. URSO [Concomitant]
     Active Substance: URSODIOL
     Dosage: BEFORE ADMINISTRATION OF CANAGLIFLOZIN
     Route: 048
  3. BAYASPIRIN [Concomitant]
     Active Substance: ASPIRIN
     Route: 048
     Dates: start: 20151204
  4. CANAGLU [Suspect]
     Active Substance: CANAGLIFLOZIN
     Indication: TYPE 2 DIABETES MELLITUS
     Route: 048
     Dates: start: 20151204, end: 20170222

REACTIONS (2)
  - Renal haemorrhage [Unknown]
  - Cystitis [Recovered/Resolved]

NARRATIVE: CASE EVENT DATE: 20170222
